FAERS Safety Report 6591711-0 (Version None)
Quarter: 2010Q1

REPORT INFORMATION
  Report Type: 
  Country: None (occurrence: None)
  Receive Date: 20100221
  Receipt Date: 20090603
  Transmission Date: 20100710
  Serious: No
  Sender: FDA-Public Use
  Company Number: US-ALLERGAN-0907776US

PATIENT
  Sex: Female

DRUGS (1)
  1. BOTOX [Suspect]
     Indication: MIGRAINE
     Dosage: UNK, SINGLE
     Route: 030
     Dates: start: 20090602, end: 20090602

REACTIONS (6)
  - ANXIETY [None]
  - DECREASED APPETITE [None]
  - EAR DISCOMFORT [None]
  - MYALGIA [None]
  - NAUSEA [None]
  - TINNITUS [None]
